FAERS Safety Report 6900355-X (Version None)
Quarter: 2010Q3

REPORT INFORMATION
  Report Type: 
  Country: None (occurrence: None)
  Receive Date: 20100803
  Receipt Date: 20100722
  Transmission Date: 20110219
  Serious: Yes (Hospitalization, Other)
  Sender: FDA-Public Use
  Company Number: PHHY2009CA00854

PATIENT
  Sex: Female
  Weight: 38.095 kg

DRUGS (3)
  1. SANDOSTATIN LAR [Suspect]
     Indication: CARCINOID SYNDROME
     Dosage: 10 MG, QMO
     Route: 030
     Dates: start: 20080407, end: 20081223
  2. SANDOSTATIN LAR [Suspect]
     Indication: METASTASES TO LIVER
  3. SANDOSTATIN LAR [Suspect]
     Indication: NEUROENDOCRINE TUMOUR

REACTIONS (10)
  - ASTHENIA [None]
  - CONTRALATERAL BREAST CANCER [None]
  - GAIT DISTURBANCE [None]
  - INJECTION SITE PAIN [None]
  - LYMPHADENECTOMY [None]
  - MASTECTOMY [None]
  - MUCOUS STOOLS [None]
  - MUSCLE ATROPHY [None]
  - TENDERNESS [None]
  - WEIGHT DECREASED [None]
